FAERS Safety Report 8009212-1 (Version None)
Quarter: 2011Q4

REPORT INFORMATION
  Report Type: 
  Country: None (occurrence: None)
  Receive Date: 20111227
  Receipt Date: 20111214
  Transmission Date: 20120403
  Serious: Yes (Other)
  Sender: FDA-Public Use
  Company Number: ES-CELGENEUS-144-21880-11121932

PATIENT
  Age: 70 Year
  Sex: Female

DRUGS (2)
  1. REVLIMID [Suspect]
     Dosage: 15 MILLIGRAM
     Route: 048
     Dates: start: 20110115, end: 20111022
  2. DEXAMETHASONE [Concomitant]
     Route: 065

REACTIONS (2)
  - QUALITY OF LIFE DECREASED [None]
  - THROMBOCYTOPENIA [None]
